FAERS Safety Report 15287575 (Version 3)
Quarter: 2018Q4

REPORT INFORMATION
  Report Type: Spontaneous
  Country: US (occurrence: US)
  Receive Date: 20180817
  Receipt Date: 20181130
  Transmission Date: 20190204
  Serious: Yes (Hospitalization, Other)
  Sender: FDA-Public Use
  Company Number: US-ABBVIE-18K-163-2453319-00

PATIENT
  Age: 29 Year
  Sex: Female
  Weight: 54.48 kg

DRUGS (1)
  1. HUMIRA [Suspect]
     Active Substance: ADALIMUMAB
     Indication: COLITIS ULCERATIVE
     Route: 058
     Dates: start: 201607, end: 20180703

REACTIONS (4)
  - Asthenia [Recovered/Resolved]
  - Fall [Recovered/Resolved]
  - Central nervous system lesion [Not Recovered/Not Resolved]
  - Demyelination [Unknown]

NARRATIVE: CASE EVENT DATE: 201806
